FAERS Safety Report 4758697-2 (Version None)
Quarter: 2005Q3

REPORT INFORMATION
  Report Type: 
  Country: None (occurrence: None)
  Receive Date: 20050826
  Receipt Date: 20050308
  Transmission Date: 20060218
  Serious: Yes (Death, Hospitalization)
  Sender: FDA-Public Use
  Company Number: 163-20785-04050559

PATIENT
  Age: 62 Year
  Sex: Female

DRUGS (6)
  1. THALOMID [Suspect]
     Indication: MULTIPLE MYELOMA
     Dosage: 200 MG, QD, PER ORAL
     Route: 048
     Dates: start: 20021105, end: 20040501
  2. DEXAMETHASONE [Suspect]
     Indication: MULTIPLE MYELOMA
     Dosage: UNKNOWN
     Route: 065
  3. ZOMETA [Concomitant]
  4. ARANESP [Concomitant]
  5. MORPHINE SULFATE [Concomitant]
  6. MS CONTIN [Concomitant]

REACTIONS (22)
  - AORTIC DISORDER [None]
  - ATELECTASIS [None]
  - CARDIAC FAILURE CONGESTIVE [None]
  - CARDIOMEGALY [None]
  - CONFUSIONAL STATE [None]
  - COUGH [None]
  - DISEASE PROGRESSION [None]
  - DRUG INTOLERANCE [None]
  - HYPERCAPNIA [None]
  - LUNG INFILTRATION [None]
  - PANCYTOPENIA [None]
  - PULMONARY CONGESTION [None]
  - PULMONARY EMBOLISM [None]
  - PULMONARY HYPERTENSION [None]
  - QRS AXIS ABNORMAL [None]
  - REFUSAL OF TREATMENT BY PATIENT [None]
  - RESPIRATORY FAILURE [None]
  - RIGHT VENTRICULAR FAILURE [None]
  - SEDATION [None]
  - SOMNOLENCE [None]
  - TRICUSPID VALVE INCOMPETENCE [None]
  - VASCULAR SHUNT [None]
